FAERS Safety Report 15857171 (Version 4)
Quarter: 2020Q1

REPORT INFORMATION
  Report Type: Spontaneous
  Country: DK (occurrence: DK)
  Receive Date: 20190123
  Receipt Date: 20200206
  Transmission Date: 20200409
  Serious: Yes (Life-Threatening, Hospitalization, Other)
  Sender: FDA-Public Use
  Company Number: DK-SAKK-2019SA015373AA

PATIENT
  Age: 39 Year
  Sex: Female
  Weight: 63 kg

DRUGS (7)
  1. BACLOFEN. [Concomitant]
     Active Substance: BACLOFEN
     Indication: MUSCLE SPASTICITY
     Dosage: 20 MG, TID
     Route: 065
     Dates: start: 20171113
  2. LEMTRADA [Suspect]
     Active Substance: ALEMTUZUMAB
     Indication: MULTIPLE SCLEROSIS
     Dosage: 12 MG, QD
     Route: 041
     Dates: start: 20170116, end: 20180129
  3. MODAFINIL. [Concomitant]
     Active Substance: MODAFINIL
     Indication: FATIGUE
     Dosage: 100 MG, BID
     Route: 065
     Dates: start: 20160203
  4. PERILAX [BISACODYL] [Concomitant]
     Indication: CONSTIPATION
     Dosage: UNK UNK, PRN
     Route: 065
     Dates: start: 20151218
  5. ZONOCT [Concomitant]
     Active Substance: ZOLPIDEM TARTRATE
     Indication: INSOMNIA
     Dosage: 10 MG, PRN
     Route: 065
     Dates: start: 20180307
  6. BACLOFEN. [Concomitant]
     Active Substance: BACLOFEN
     Indication: MUSCLE RELAXANT THERAPY
     Dosage: 30 MG, QD
     Route: 048
     Dates: start: 20170511, end: 20181212
  7. CYMBALTA [Concomitant]
     Active Substance: DULOXETINE HYDROCHLORIDE
     Indication: DEPRESSION
     Dosage: 60 MG, QD (CUMULATIVE DOSE: 2760 MG)
     Route: 065
     Dates: start: 20161116

REACTIONS (14)
  - Metastases to central nervous system [Unknown]
  - Lung cancer metastatic [Not Recovered/Not Resolved]
  - Lung consolidation [Not Recovered/Not Resolved]
  - Oral pain [Unknown]
  - Chest discomfort [Not Recovered/Not Resolved]
  - Muscle spasms [Unknown]
  - Insomnia [Not Recovered/Not Resolved]
  - Rash [Unknown]
  - Metastases to adrenals [Unknown]
  - Non-small cell lung cancer [Unknown]
  - Seizure [Unknown]
  - Cystic lung disease [Not Recovered/Not Resolved]
  - Adrenomegaly [Not Recovered/Not Resolved]
  - Granulomatous lymphadenitis [Recovering/Resolving]

NARRATIVE: CASE EVENT DATE: 201701
